FAERS Safety Report 8903616 (Version 3)
Quarter: 2013Q1

REPORT INFORMATION
  Report Type: Spontaneous
  Country: US (occurrence: US)
  Receive Date: 20121113
  Receipt Date: 20130116
  Transmission Date: 20140127
  Serious: No
  Sender: FDA-Public Use
  Company Number: US-PFIZER INC-2012283069

PATIENT
  Age: 72 Year
  Sex: Female
  Weight: 73.02 kg

DRUGS (13)
  1. LIPITOR [Suspect]
     Indication: BLOOD CHOLESTEROL INCREASED
     Dosage: 10 MG, DAILY AT BEDTIME
     Route: 048
     Dates: start: 2006, end: 2012
  2. ATORVASTATIN CALCIUM [Suspect]
     Indication: BLOOD CHOLESTEROL INCREASED
     Dosage: 10 MG, DAILY
     Route: 048
     Dates: start: 20120316, end: 20120409
  3. CADUET [Concomitant]
     Indication: HYPERTENSION
     Dosage: UNK
     Dates: start: 2006
  4. CADUET [Concomitant]
     Indication: BLOOD CHOLESTEROL INCREASED
  5. AMLODIPINE [Concomitant]
     Indication: HYPERTENSION
     Dosage: UNK
  6. AMLODIPINE BESYLATE [Concomitant]
     Dosage: 5 MG, UNK
  7. ALENDRONATE [Concomitant]
     Dosage: 70 MG, ONCE A WEEK
  8. FOLBIC [Concomitant]
     Dosage: 1 DF, DAILY
  9. PROGESTERONE [Concomitant]
     Dosage: 4 GTT, NIGHTLY
  10. HYDROQUINONE [Concomitant]
     Dosage: 4 %, DAILY
  11. PHILLIPS [Concomitant]
     Dosage: X2 NIGHTLY
  12. FISH OIL [Concomitant]
     Dosage: UNK, DAILY
  13. CALCIUM WITH VITAMIN D [Concomitant]
     Dosage: CALCIUM 600 MG/ C VIT D 2 DAILY

REACTIONS (8)
  - Muscle spasms [Recovered/Resolved]
  - Pain [Recovered/Resolved]
  - Pain in extremity [Recovered/Resolved]
  - Headache [Recovered/Resolved]
  - Dizziness [Recovered/Resolved]
  - Myalgia [Recovered/Resolved]
  - Fatigue [Unknown]
  - Typical aura without headache [Recovered/Resolved]
